FAERS Safety Report 14850297 (Version 4)
Quarter: 2018Q3

REPORT INFORMATION
  Report Type: Spontaneous
  Country: FR (occurrence: FR)
  Receive Date: 20180505
  Receipt Date: 20180912
  Transmission Date: 20181010
  Serious: Yes (Other)
  Sender: FDA-Public Use
  Company Number: FR-AUROBINDO-AUR-APL-2018-024121

PATIENT
  Age: 48 Year
  Sex: Female

DRUGS (23)
  1. OLANZAPINE. [Suspect]
     Active Substance: OLANZAPINE
     Indication: PRODUCT USED FOR UNKNOWN INDICATION
     Dosage: UNK ()
     Route: 065
     Dates: start: 201802, end: 201802
  2. LEPONEX [Suspect]
     Active Substance: CLOZAPINE
     Indication: SCHIZOPHRENIA
     Dosage: UNK ()
     Route: 048
     Dates: start: 201707
  3. CLOZAPINE. [Suspect]
     Active Substance: CLOZAPINE
     Dosage: 200 MG, QD
     Route: 065
     Dates: start: 20180423, end: 20180503
  4. TERCIAN                            /00759301/ [Concomitant]
     Active Substance: CYAMEMAZINE
     Indication: PRODUCT USED FOR UNKNOWN INDICATION
     Dosage: 3.5 DOSAGE FORM, ONCE A DAY
     Route: 048
     Dates: start: 20180131
  5. ZOLOFT [Concomitant]
     Active Substance: SERTRALINE HYDROCHLORIDE
     Dosage: 3 DF, QD
     Route: 048
     Dates: start: 20180131
  6. LEPONEX [Suspect]
     Active Substance: CLOZAPINE
     Dosage: 25 MG, QD
     Route: 048
     Dates: start: 201802, end: 20180331
  7. LEPONEX [Suspect]
     Active Substance: CLOZAPINE
     Dosage: 50 MG, QD
     Route: 048
     Dates: start: 20180402, end: 20180408
  8. ALPRAZOLAM. [Concomitant]
     Active Substance: ALPRAZOLAM
     Dosage: 3 DF, QD
     Route: 048
     Dates: start: 20180131
  9. SOLIAN [Concomitant]
     Active Substance: AMISULPRIDE
     Dosage: 1 DF, QD
     Route: 065
     Dates: start: 20180505
  10. ZOLOFT [Concomitant]
     Active Substance: SERTRALINE HYDROCHLORIDE
     Indication: PRODUCT USED FOR UNKNOWN INDICATION
     Dosage: 3 DF, QD
     Route: 048
  11. CLOZAPINE. [Suspect]
     Active Substance: CLOZAPINE
     Dosage: 275 MG, QD
     Route: 065
     Dates: start: 20180514
  12. CLOZAPINE. [Suspect]
     Active Substance: CLOZAPINE
     Dosage: UNK
     Route: 048
     Dates: start: 201707
  13. ALPRAZOLAM. [Concomitant]
     Active Substance: ALPRAZOLAM
     Indication: PRODUCT USED FOR UNKNOWN INDICATION
     Dosage: 3 DF, QD
     Route: 048
  14. SOLIAN [Concomitant]
     Active Substance: AMISULPRIDE
     Dosage: 3 DF, QD
     Route: 048
     Dates: start: 20180227
  15. CLOZAPINE. [Suspect]
     Active Substance: CLOZAPINE
     Dosage: 225 MG, QD
     Route: 065
     Dates: start: 20180503, end: 20180505
  16. CLOZAPINE. [Suspect]
     Active Substance: CLOZAPINE
     Dosage: 250 MG, QD
     Route: 065
     Dates: start: 20180505, end: 20180514
  17. LEPONEX [Suspect]
     Active Substance: CLOZAPINE
     Dosage: 75 MG, QD
     Route: 048
     Dates: start: 20180408, end: 20180417
  18. CLOZAPINE. [Suspect]
     Active Substance: CLOZAPINE
     Indication: PRODUCT USED FOR UNKNOWN INDICATION
     Dosage: 100 MG, QD
     Route: 065
     Dates: start: 20180417, end: 20180419
  19. CLOZAPINE. [Suspect]
     Active Substance: CLOZAPINE
     Dosage: 150 MG, QD
     Route: 065
     Dates: start: 20180420, end: 20180423
  20. SOLIAN [Concomitant]
     Active Substance: AMISULPRIDE
     Indication: PRODUCT USED FOR UNKNOWN INDICATION
     Dosage: 3 DF, QD
     Route: 048
  21. LEPONEX [Suspect]
     Active Substance: CLOZAPINE
     Dosage: 25 MG, QD
     Route: 048
     Dates: start: 20180331, end: 20180402
  22. CLOZAPINE. [Suspect]
     Active Substance: CLOZAPINE
     Dosage: 125 MG, QD
     Route: 065
     Dates: start: 20180419, end: 20180420
  23. CLOZAPINE. [Suspect]
     Active Substance: CLOZAPINE
     Dosage: 25 UNK
     Route: 048
     Dates: start: 201802, end: 20180331

REACTIONS (2)
  - Lymphopenia [Not Recovered/Not Resolved]
  - Condition aggravated [Not Recovered/Not Resolved]
